FAERS Safety Report 8313874-9 (Version None)
Quarter: 2012Q2

REPORT INFORMATION
  Report Type: 
  Country: None (occurrence: None)
  Receive Date: 20120426
  Receipt Date: 20120416
  Transmission Date: 20120825
  Serious: Yes (Other)
  Sender: FDA-Public Use
  Company Number: DE-JNJFOC-20120102333

PATIENT
  Sex: Male
  Weight: 72 kg

DRUGS (4)
  1. LEUPROLIDE ACETATE [Concomitant]
     Indication: PROSTATE CANCER
     Route: 058
     Dates: start: 20100801
  2. ZYTIGA [Suspect]
     Indication: PROSTATE CANCER
     Route: 048
     Dates: start: 20110907
  3. XGEVA [Suspect]
     Indication: METASTASES TO BONE
     Route: 058
     Dates: start: 20110901, end: 20111021
  4. PREDNISOLONE [Concomitant]
     Indication: PROSTATE CANCER
     Route: 048
     Dates: start: 20110907

REACTIONS (1)
  - BLOOD ALKALINE PHOSPHATASE INCREASED [None]
